FAERS Safety Report 5906287-8 (Version None)
Quarter: 2008Q4

REPORT INFORMATION
  Report Type: 
  Country: None (occurrence: None)
  Receive Date: 20081002
  Receipt Date: 20080922
  Transmission Date: 20090506
  Serious: Yes (Hospitalization)
  Sender: FDA-Public Use
  Company Number: US-PFIZER INC-2008081490

PATIENT
  Age: 7 Year
  Sex: Male

DRUGS (2)
  1. PREDNISONE [Suspect]
     Indication: ASTHMA
     Dosage: DAILY DOSE:2MG/KG
     Route: 048
  2. ALBUTEROL [Concomitant]
     Indication: ASTHMA

REACTIONS (2)
  - LEUKOCYTOSIS [None]
  - PRIAPISM [None]
